FAERS Safety Report 11514069 (Version 1)
Quarter: 2015Q3

REPORT INFORMATION
  Report Type: Spontaneous
  Country: US (occurrence: US)
  Receive Date: 20150903
  Receipt Date: 20150903
  Transmission Date: 20151125
  Serious: Yes (Hospitalization, Other)
  Sender: FDA-Public Use
  Company Number: US-ELI_LILLY_AND_COMPANY-US201208009206

PATIENT
  Age: 49 Year
  Sex: Female
  Weight: 64.85 kg

DRUGS (6)
  1. CYMBALTA [Suspect]
     Active Substance: DULOXETINE HYDROCHLORIDE
     Indication: DEPRESSION
     Dosage: 30 MG, BID
     Dates: start: 20120423, end: 201205
  2. CYMBALTA [Suspect]
     Active Substance: DULOXETINE HYDROCHLORIDE
     Dosage: 60 MG, BID
     Route: 048
     Dates: start: 20120508, end: 20120528
  3. ATIVAN [Concomitant]
     Active Substance: LORAZEPAM
     Indication: ANXIETY
     Dosage: 1 MG, QID
     Route: 048
     Dates: start: 20110713
  4. ASPIRIN. [Concomitant]
     Active Substance: ASPIRIN
  5. LEXAPRO [Concomitant]
     Active Substance: ESCITALOPRAM OXALATE
     Indication: AFFECTIVE DISORDER
     Dosage: 10 MG, QD
  6. SOMA [Concomitant]
     Active Substance: CARISOPRODOL
     Indication: BACK PAIN
     Dosage: 1 DF, PRN

REACTIONS (26)
  - Migraine [Unknown]
  - Drug withdrawal headache [Not Recovered/Not Resolved]
  - Fatigue [Not Recovered/Not Resolved]
  - Asthenia [Recovering/Resolving]
  - Hypotension [Recovering/Resolving]
  - Thyroxine decreased [Unknown]
  - Crying [Recovering/Resolving]
  - Pain [Unknown]
  - Epstein-Barr virus antigen positive [Unknown]
  - Seizure [Recovering/Resolving]
  - Epstein-Barr virus antibody positive [Unknown]
  - Feeling abnormal [Unknown]
  - Paraesthesia [Unknown]
  - Drug withdrawal syndrome [Not Recovered/Not Resolved]
  - Pallor [Unknown]
  - Cold sweat [Recovering/Resolving]
  - Pain in extremity [Not Recovered/Not Resolved]
  - Gait disturbance [Not Recovered/Not Resolved]
  - Syncope [Recovering/Resolving]
  - Hyperhidrosis [Recovering/Resolving]
  - Headache [Recovering/Resolving]
  - Disorientation [Recovering/Resolving]
  - Memory impairment [Unknown]
  - Overdose [Unknown]
  - Somnolence [Unknown]
  - Malaise [Unknown]

NARRATIVE: CASE EVENT DATE: 20120525
